FAERS Safety Report 11877703 (Version 4)
Quarter: 2016Q1

REPORT INFORMATION
  Report Type: Report from Study
  Country: US (occurrence: US)
  Receive Date: 20151230
  Receipt Date: 20160315
  Transmission Date: 20160526
  Serious: Yes (Death, Other)
  Sender: FDA-Public Use
  Company Number: US-BEH-2015057191

PATIENT
  Age: 23 Year
  Sex: Male
  Weight: 113.8 kg

DRUGS (6)
  1. PYRIDOSTIGMINE [Concomitant]
     Active Substance: PYRIDOSTIGMINE
     Indication: MYASTHENIA GRAVIS
     Dosage: PRESENT
     Route: 048
     Dates: start: 20120101
  2. PRIVIGEN [Suspect]
     Active Substance: HUMAN IMMUNOGLOBULIN G
     Route: 042
     Dates: start: 20151118, end: 20151118
  3. METOPROLOL. [Concomitant]
     Active Substance: METOPROLOL
     Indication: ARRHYTHMIA
     Dosage: PRESENT
     Route: 048
     Dates: start: 20150601
  4. PRIVIGEN [Suspect]
     Active Substance: HUMAN IMMUNOGLOBULIN G
     Indication: MYASTHENIA GRAVIS
     Route: 042
     Dates: start: 20151117, end: 20151117
  5. PRIVIGEN [Suspect]
     Active Substance: HUMAN IMMUNOGLOBULIN G
     Dosage: RATE - 1.2 ML/KG/HR (ML/MIN), STRENGTH 20G/200ML
     Route: 042
     Dates: start: 20151215, end: 20151215
  6. METHADONE [Concomitant]
     Active Substance: METHADONE HYDROCHLORIDE
     Indication: REHABILITATION THERAPY
     Dosage: PRESENT
     Route: 048
     Dates: start: 20150201

REACTIONS (10)
  - Seizure [Recovered/Resolved]
  - Trismus [Recovered/Resolved]
  - Posturing [Recovered/Resolved]
  - Pallor [Recovered/Resolved]
  - Death [Fatal]
  - Cold sweat [Recovered/Resolved]
  - Hyperhidrosis [Recovered/Resolved]
  - Confusional state [Recovered/Resolved]
  - Unresponsive to stimuli [Recovered/Resolved]
  - Dyspnoea [Recovered/Resolved]

NARRATIVE: CASE EVENT DATE: 20151215
